FAERS Safety Report 10739898 (Version 1)
Quarter: 2015Q1

REPORT INFORMATION
  Report Type: Spontaneous
  Country: US (occurrence: US)
  Receive Date: 20150127
  Receipt Date: 20150127
  Transmission Date: 20150721
  Serious: Yes (Hospitalization)
  Sender: FDA-Public Use
  Company Number: US-JNJFOC-20150111287

PATIENT
  Age: 18 Year
  Sex: Female
  Weight: 58.97 kg

DRUGS (2)
  1. ACETAMINOPHEN. [Suspect]
     Active Substance: ACETAMINOPHEN
     Indication: SUICIDE ATTEMPT
     Dosage: LARGE AMOUNTS
     Route: 048
  2. ACETAMINOPHEN. [Suspect]
     Active Substance: ACETAMINOPHEN
     Route: 048

REACTIONS (13)
  - Aspartate aminotransferase increased [Recovering/Resolving]
  - Toxicity to various agents [Recovering/Resolving]
  - Urine output decreased [Recovering/Resolving]
  - Acidosis [Unknown]
  - Nausea [Unknown]
  - Prothrombin time prolonged [Recovering/Resolving]
  - Alanine aminotransferase increased [Recovering/Resolving]
  - Abdominal pain [Unknown]
  - Vomiting [Unknown]
  - Blood creatinine increased [Recovering/Resolving]
  - Hypertension [Unknown]
  - Blood urea increased [Unknown]
  - Pain [Unknown]

NARRATIVE: CASE EVENT DATE: 20120531
